FAERS Safety Report 20624314 (Version 1)
Quarter: 2022Q1

REPORT INFORMATION
  Report Type: Spontaneous
  Country: US (occurrence: US)
  Receive Date: 20220322
  Receipt Date: 20220322
  Transmission Date: 20220423
  Serious: No
  Sender: FDA-Public Use
  Company Number: US-SANOFI-01019532

PATIENT
  Age: 74 Year
  Sex: Female

DRUGS (1)
  1. TOUJEO [Suspect]
     Active Substance: INSULIN GLARGINE
     Indication: Type 2 diabetes mellitus
     Dosage: 24 U, QD
     Dates: start: 2016

REACTIONS (3)
  - Skin papilloma [Unknown]
  - Melanocytic naevus [Unknown]
  - Eye disorder [Unknown]

NARRATIVE: CASE EVENT DATE: 20190101
